FAERS Safety Report 8782904 (Version 1)
Quarter: 2012Q4

REPORT INFORMATION
  Report Type: 
  Country: SE (occurrence: SE)
  Receive Date: 20120913
  Receipt Date: 20120913
  Transmission Date: 20130627
  Serious: Yes (Hospitalization)
  Sender: FDA-Public Use
  Company Number: PHHY2012SE078692

PATIENT
  Age: 89 Year
  Sex: Female

DRUGS (6)
  1. ENALAPRIL COMP SANDOZ [Suspect]
     Indication: HYPERTONIA
     Route: 048
  2. XALATAN [Concomitant]
  3. ZOLPIDEM [Concomitant]
  4. COSOPT [Concomitant]
  5. EMCONCOR [Concomitant]
     Dosage: 10 mg, UNK
  6. AZOPT [Concomitant]

REACTIONS (4)
  - Dehydration [Recovered/Resolved with Sequelae]
  - Hyponatraemia [Recovered/Resolved with Sequelae]
  - Hypophagia [Unknown]
  - Fall [Unknown]
